FAERS Safety Report 15424367 (Version 5)
Quarter: 2020Q2

REPORT INFORMATION
  Report Type: Spontaneous
  Country: US (occurrence: US)
  Receive Date: 20180925
  Receipt Date: 20200427
  Transmission Date: 20200713
  Serious: No
  Sender: FDA-Public Use
  Company Number: US-SA-2018SA263020

PATIENT
  Age: 45 Year
  Sex: Female

DRUGS (2)
  1. KEVZARA [Suspect]
     Active Substance: SARILUMAB
     Indication: RHEUMATOID ARTHRITIS
     Dosage: 200 MG, QOW
     Route: 058
     Dates: start: 20180817
  2. KEVZARA [Suspect]
     Active Substance: SARILUMAB
     Dosage: 200 MG, QOW
     Route: 058

REACTIONS (6)
  - Weight increased [Unknown]
  - Nasopharyngitis [Recovered/Resolved]
  - Nausea [Unknown]
  - Wrong technique in product usage process [Unknown]
  - Product dose omission [Unknown]
  - Tooth extraction [Unknown]

NARRATIVE: CASE EVENT DATE: 202003
